FAERS Safety Report 13167584 (Version 1)
Quarter: 2017Q1

REPORT INFORMATION
  Report Type: Spontaneous
  Country: US (occurrence: US)
  Receive Date: 20170131
  Receipt Date: 20170131
  Transmission Date: 20170428
  Serious: Yes (Hospitalization)
  Sender: FDA-Public Use
  Company Number: US-VERTEX PHARMACEUTICALS-2017-000087

PATIENT
  Age: 17 Year
  Sex: Male
  Weight: 77 kg

DRUGS (1)
  1. ORKAMBI [Suspect]
     Active Substance: IVACAFTOR\LUMACAFTOR
     Indication: CYSTIC FIBROSIS
     Dosage: 2 DF (200/125 MG EACH), BID
     Route: 048
     Dates: start: 20160120

REACTIONS (3)
  - Drug dose omission [Recovered/Resolved]
  - Insurance issue [Recovered/Resolved]
  - Faecaloma [Unknown]

NARRATIVE: CASE EVENT DATE: 201612
